FAERS Safety Report 11319644 (Version 2)
Quarter: 2015Q3

REPORT INFORMATION
  Report Type: Spontaneous
  Country: US (occurrence: US)
  Receive Date: 20150729
  Receipt Date: 20150807
  Transmission Date: 20151125
  Serious: Yes (Hospitalization)
  Sender: FDA-Public Use
  Company Number: US-JNJFOC-20150715937

PATIENT
  Age: 54 Year
  Sex: Female
  Weight: 60.1 kg

DRUGS (1)
  1. XARELTO [Suspect]
     Active Substance: RIVAROXABAN
     Indication: PULMONARY EMBOLISM
     Route: 048
     Dates: start: 20150615

REACTIONS (1)
  - Central nervous system haemorrhage [Unknown]

NARRATIVE: CASE EVENT DATE: 20150707
